FAERS Safety Report 25537249 (Version 1)
Quarter: 2025Q3

REPORT INFORMATION
  Report Type: Spontaneous
  Country: CA (occurrence: CA)
  Receive Date: 20250710
  Receipt Date: 20250710
  Transmission Date: 20251020
  Serious: Yes (Other)
  Sender: CELLTRION
  Company Number: CA-CELLTRION INC.-2025CA001145

PATIENT

DRUGS (9)
  1. YUFLYMA [Suspect]
     Active Substance: ADALIMUMAB-AATY
     Indication: Hidradenitis
  2. BENZAC [BENZOYL PEROXIDE] [Concomitant]
     Dates: start: 20221202
  3. CEPHALEXIN [Concomitant]
     Active Substance: CEPHALEXIN
     Dates: start: 20241223, end: 20241229
  4. CURCUMIN [Concomitant]
     Active Substance: CURCUMIN
     Dates: start: 20241223
  5. METFORMIN [Concomitant]
     Active Substance: METFORMIN HYDROCHLORIDE
     Dates: start: 20231213, end: 20240103
  6. METRONIDAZOLE [Concomitant]
     Active Substance: METRONIDAZOLE
     Dates: start: 20231011, end: 20231205
  7. MOXIFLOXACIN [Concomitant]
     Active Substance: MOXIFLOXACIN
     Dates: start: 20231011, end: 20231205
  8. NAPROXEN [Concomitant]
     Active Substance: NAPROXEN
     Dates: start: 20241221
  9. RIFAMPIN [Concomitant]
     Active Substance: RIFAMPIN
     Dates: start: 20231011, end: 20231205

REACTIONS (2)
  - Incisional drainage [Recovered/Resolved]
  - Drug ineffective [Recovered/Resolved]

NARRATIVE: CASE EVENT DATE: 20250102
